FAERS Safety Report 6721377-8 (Version None)
Quarter: 2010Q2

REPORT INFORMATION
  Report Type: 
  Country: None (occurrence: None)
  Receive Date: 20100512
  Receipt Date: 20100505
  Transmission Date: 20101027
  Serious: No
  Sender: FDA-Public Use
  Company Number: US-B.I. PHARMACEUTICALS,INC./RIDGEFIELD-2010-BP-05180BP

PATIENT
  Sex: Female

DRUGS (2)
  1. ZANTAC 75 [Suspect]
     Indication: OESOPHAGITIS
     Dosage: 300 MG
     Route: 048
  2. VERAPAMIL [Concomitant]

REACTIONS (1)
  - DRUG EFFECT DELAYED [None]
